FAERS Safety Report 4559021-0 (Version None)
Quarter: 2005Q1

REPORT INFORMATION
  Report Type: 
  Country: None (occurrence: None)
  Receive Date: 20050124
  Receipt Date: 20050112
  Transmission Date: 20050727
  Serious: Yes (Hospitalization, Other)
  Sender: FDA-Public Use
  Company Number: JP-JNJFOC-20050102776

PATIENT
  Sex: Female
  Weight: 58 kg

DRUGS (16)
  1. REMICADE [Suspect]
  2. REMICADE [Suspect]
     Indication: RHEUMATOID ARTHRITIS
  3. RHEUMATREX [Suspect]
     Indication: RHEUMATOID ARTHRITIS
     Route: 049
  4. PREDNISOLONE [Suspect]
     Indication: RHEUMATOID ARTHRITIS
     Route: 049
  5. MOBIC [Concomitant]
     Indication: RHEUMATOID ARTHRITIS
     Route: 049
  6. VOLTAREN [Concomitant]
     Indication: RHEUMATOID ARTHRITIS
  7. ADOFEED [Concomitant]
     Indication: RHEUMATOID ARTHRITIS
  8. BONALON [Concomitant]
     Route: 049
  9. TAKEPRON [Concomitant]
     Route: 049
  10. CYTOTEC [Concomitant]
     Route: 049
  11. SERENAL [Concomitant]
     Route: 049
  12. CONIEL [Concomitant]
     Route: 049
  13. PENFILL R [Concomitant]
  14. PENFILL 30R [Concomitant]
  15. MODAJIN [Concomitant]
     Route: 042
  16. INH [Concomitant]
     Indication: TUBERCULOSIS PROPHYLAXIS

REACTIONS (1)
  - NEPHRITIS [None]
